FAERS Safety Report 6983095-0 (Version None)
Quarter: 2010Q3

REPORT INFORMATION
  Report Type: 
  Country: None (occurrence: None)
  Receive Date: 20100914
  Receipt Date: 20100531
  Transmission Date: 20110219
  Serious: No
  Sender: FDA-Public Use
  Company Number: US-PFIZER INC-2010068788

PATIENT
  Sex: Male

DRUGS (4)
  1. LYRICA [Suspect]
     Indication: MYOSCLEROSIS
     Dosage: 150 MG, 1X/DAY
     Route: 048
     Dates: start: 20091201
  2. LYRICA [Suspect]
     Indication: DIABETIC NEUROPATHY
  3. VIAGRA [Concomitant]
     Dosage: UNK
  4. LIPITOR [Concomitant]
     Dosage: UNK

REACTIONS (3)
  - DRY MOUTH [None]
  - SEXUAL DYSFUNCTION [None]
  - SOMNOLENCE [None]
